FAERS Safety Report 9191039 (Version 3)
Quarter: 2013Q2

REPORT INFORMATION
  Report Type: Spontaneous
  Country: JP (occurrence: JP)
  Receive Date: 20130326
  Receipt Date: 20130528
  Transmission Date: 20140414
  Serious: Yes (Other)
  Sender: FDA-Public Use
  Company Number: JP-BAYER-2013-036875

PATIENT
  Age: 17 Year
  Sex: Male
  Weight: 91 kg

DRUGS (28)
  1. KOGENATE FS [Suspect]
     Indication: FACTOR VIII DEFICIENCY
     Dosage: 1000 IU, PRN
     Route: 042
     Dates: start: 199409, end: 20050111
  2. KOGENATE FS [Suspect]
     Indication: HAEMOSTASIS
     Dosage: 5000 IU, BID
     Route: 042
     Dates: start: 20050111, end: 20050111
  3. KOGENATE FS [Suspect]
     Indication: IMMUNE TOLERANCE INDUCTION
     Dosage: UNK
     Route: 042
     Dates: start: 20050112, end: 20050117
  4. KOGENATE FS [Suspect]
     Indication: FACTOR VIII DEFICIENCY
     Dosage: 9000 IU, UNK
     Route: 042
     Dates: start: 20050118
  5. KOGENATE FS [Suspect]
     Indication: FACTOR VIII DEFICIENCY
     Dosage: 7000 IU, UNK
     Route: 042
     Dates: start: 20050120
  6. KOGENATE FS [Suspect]
     Indication: FACTOR VIII DEFICIENCY
     Dosage: 7000 IU, BID
     Route: 042
     Dates: start: 20050125, end: 20050128
  7. KOGENATE FS [Suspect]
     Indication: FACTOR VIII DEFICIENCY
     Dosage: 5000 IU, BID
     Route: 042
     Dates: start: 20050129, end: 20050130
  8. KOGENATE FS [Suspect]
     Indication: FACTOR VIII DEFICIENCY
     Dosage: 4000 IU, BID
     Route: 042
     Dates: start: 20050131, end: 20050131
  9. KOGENATE FS [Suspect]
     Indication: FACTOR VIII DEFICIENCY
     Dosage: 3000 IU, BID
     Route: 042
     Dates: start: 20050201, end: 20050224
  10. KOGENATE FS [Suspect]
     Indication: FACTOR VIII DEFICIENCY
     Dosage: 2000 IU, QD
     Route: 042
     Dates: start: 20050225, end: 20050411
  11. KOGENATE FS [Suspect]
     Indication: FACTOR VIII DEFICIENCY
     Dosage: 2000 IU, TIW
     Route: 042
     Dates: start: 20050412
  12. KOGENATE FS [Suspect]
     Indication: FACTOR VIII DEFICIENCY
     Dosage: 2000 IU, UNK
     Route: 042
     Dates: start: 20050601
  13. PLASMA, FRESH FROZEN [Concomitant]
     Dosage: DAILY DOSE 10 DF
     Route: 042
     Dates: start: 20050111
  14. PLASMA, FRESH FROZEN [Concomitant]
     Dosage: DAILY DOSE 4 DF
     Route: 042
     Dates: start: 20050112
  15. HUMAN RED BLOOD CELLS [Concomitant]
     Dosage: DAILY DOSE 16 DF
     Dates: start: 20050111
  16. HUMAN RED BLOOD CELLS [Concomitant]
     Dosage: DAILY DOSE 4 DF
     Route: 042
     Dates: start: 20050113
  17. HUMAN RED BLOOD CELLS [Concomitant]
     Dosage: DAILY DOSE 8 DF
     Dates: start: 20050124
  18. HUMAN RED BLOOD CELLS [Concomitant]
     Dosage: DAILY DOSE 4 DF
     Dates: start: 20050125, end: 20050126
  19. CEFMETAZOLE SODIUM [Concomitant]
     Indication: PNEUMONIA
     Dosage: DAILY DOSE 2 G
     Route: 041
     Dates: start: 20050111, end: 20050113
  20. NEUART [Concomitant]
     Indication: DISSEMINATED INTRAVASCULAR COAGULATION
     Dosage: DAILY DOSE 3000 U
     Route: 041
     Dates: start: 20050111, end: 20050112
  21. ARODATE [Concomitant]
     Indication: DISSEMINATED INTRAVASCULAR COAGULATION
     Dosage: DAILY DOSE 2500 MG
     Route: 041
     Dates: start: 20050111, end: 20050117
  22. BRADOL [Concomitant]
     Indication: DISSEMINATED INTRAVASCULAR COAGULATION
     Dosage: DAILY DOSE 300000 U
     Route: 041
     Dates: start: 20050111, end: 20050117
  23. DORMICUM [Concomitant]
     Indication: SEDATION
     Dosage: DAILY DOSE 50 MG
     Route: 041
     Dates: start: 20050111, end: 20050117
  24. DOBUTAMINE HYDROCHLORIDE [Concomitant]
     Indication: CIRCULATORY COLLAPSE
     Dosage: DAILY DOSE 200 ML
     Route: 041
     Dates: start: 20050111, end: 20050117
  25. MUSCULAX [Concomitant]
     Indication: SEDATION
     Dosage: DAILY DOSE 50 MG
     Route: 041
     Dates: start: 20050111, end: 20050117
  26. CHICHINA [Concomitant]
     Indication: HAEMOSTASIS
     Dosage: DAILY DOSE 100 MG
     Route: 041
     Dates: start: 20050111
  27. RIKAVARIN [Concomitant]
     Indication: HAEMOSTASIS
     Dosage: DAILY DOSE 1000 MG
     Route: 041
     Dates: start: 20050111
  28. CARBENIN [Concomitant]
     Indication: PNEUMONIA
     Dosage: DAILY DOSE 2 G
     Route: 041
     Dates: start: 20050114

REACTIONS (2)
  - Anti factor VIII antibody positive [Recovered/Resolved]
  - Gastric ulcer haemorrhage [None]
